FAERS Safety Report 7807234-4 (Version None)
Quarter: 2011Q4

REPORT INFORMATION
  Report Type: 
  Country: None (occurrence: None)
  Receive Date: 20111011
  Receipt Date: 20111005
  Transmission Date: 20120403
  Serious: Yes (Hospitalization)
  Sender: FDA-Public Use
  Company Number: US-PFIZER INC-2011237720

PATIENT
  Sex: Female

DRUGS (1)
  1. SUTENT [Suspect]
     Indication: NEOPLASM MALIGNANT
     Dosage: 50 MG, 1X/DAY
     Route: 048
     Dates: start: 20110901, end: 20110915

REACTIONS (5)
  - DIARRHOEA [None]
  - THROAT LESION [None]
  - DECREASED APPETITE [None]
  - NAUSEA [None]
  - STOMATITIS [None]
